FAERS Safety Report 11289586 (Version 3)
Quarter: 2015Q3

REPORT INFORMATION
  Report Type: Spontaneous
  Country: US (occurrence: US)
  Receive Date: 20150721
  Receipt Date: 20150901
  Transmission Date: 20151125
  Serious: Yes (Death, Other)
  Sender: FDA-Public Use
  Company Number: US-PFIZER INC-2015238328

PATIENT
  Sex: Female

DRUGS (2)
  1. NORTHERA [Suspect]
     Active Substance: DROXIDOPA
     Indication: POSTURAL ORTHOSTATIC TACHYCARDIA SYNDROME
     Dosage: UNK
  2. XANAX [Suspect]
     Active Substance: ALPRAZOLAM
     Dosage: A WHOLE BOTTLE
     Route: 048
     Dates: start: 20150616

REACTIONS (5)
  - Delirium [Unknown]
  - Depression [Unknown]
  - Completed suicide [Fatal]
  - Personality change [Unknown]
  - Intentional overdose [Fatal]

NARRATIVE: CASE EVENT DATE: 20150616
